FAERS Safety Report 20981093 (Version 3)
Quarter: 2022Q4

REPORT INFORMATION
  Report Type: Spontaneous
  Country: CA (occurrence: CA)
  Receive Date: 20220620
  Receipt Date: 20221005
  Transmission Date: 20230113
  Serious: Yes (Death, Other)
  Sender: FDA-Public Use
  Company Number: CA-PFIZER INC-PV202200002996

PATIENT
  Age: 50 Year
  Sex: Female

DRUGS (1)
  1. IBRANCE [Suspect]
     Active Substance: PALBOCICLIB
     Indication: Breast cancer metastatic
     Dosage: UNK
     Dates: start: 20220217, end: 202209

REACTIONS (9)
  - Death [Fatal]
  - Ascites [Unknown]
  - Hip fracture [Unknown]
  - Haemothorax [Unknown]
  - Lymphadenopathy [Unknown]
  - Rib fracture [Recovering/Resolving]
  - Pleural effusion [Unknown]
  - Spleen disorder [Unknown]
  - Neoplasm progression [Unknown]

NARRATIVE: CASE EVENT DATE: 20220609
